FAERS Safety Report 7032116-8 (Version None)
Quarter: 2010Q4

REPORT INFORMATION
  Report Type: 
  Country: None (occurrence: None)
  Receive Date: 20101007
  Receipt Date: 20091110
  Transmission Date: 20110411
  Serious: Yes (Other)
  Sender: FDA-Public Use
  Company Number: FR-BRISTOL-MYERS SQUIBB COMPANY-14853782

PATIENT
  Age: 44 Year

DRUGS (4)
  1. CETUXIMAB [Suspect]
     Indication: COLON CANCER
     Dosage: 15JUL-30SEP09:250MG/M2 (77 DAYS) 7OCT09- RECENT INF:23SEP09 DELAYED ON 30SEP9 RESTARTED ON 7OCT9
     Route: 042
     Dates: start: 20090715
  2. OXALIPLATIN [Suspect]
     Indication: COLON CANCER
     Dosage: RECENT INF:23SEP09
     Route: 042
     Dates: start: 20090715
  3. FLUOROURACIL [Suspect]
     Indication: COLON CANCER
     Dosage: RECENT INF:24SEP09
     Route: 042
     Dates: start: 20090715
  4. FOLINIC ACID [Suspect]
     Indication: COLON CANCER
     Dosage: RECENT INF:24SEP09
     Route: 042
     Dates: start: 20090715

REACTIONS (1)
  - PORTAL VEIN THROMBOSIS [None]
